FAERS Safety Report 8831328 (Version 1)
Quarter: 2012Q4

REPORT INFORMATION
  Report Type: 
  Country: FR (occurrence: FR)
  Receive Date: 20121008
  Receipt Date: 20121008
  Transmission Date: 20130627
  Serious: Yes (Other)
  Sender: FDA-Public Use
  Company Number: FR-PFIZER INC-2012244851

PATIENT
  Sex: Male

DRUGS (1)
  1. TAHOR [Suspect]
     Dosage: 20 mg

REACTIONS (1)
  - Myocardial infarction [Unknown]
